FAERS Safety Report 21812715 (Version 1)
Quarter: 2023Q1

REPORT INFORMATION
  Report Type: Spontaneous
  Country: FR (occurrence: FR)
  Receive Date: 20230103
  Receipt Date: 20230103
  Transmission Date: 20230418
  Serious: Yes (Death)
  Sender: FDA-Public Use
  Company Number: None

PATIENT
  Age: 56 Year
  Sex: Male
  Weight: 60 kg

DRUGS (12)
  1. CARBOPLATIN [Suspect]
     Active Substance: CARBOPLATIN
     Indication: Lung adenocarcinoma
     Dosage: UNK
     Route: 042
     Dates: start: 20211215, end: 20211215
  2. CARBOPLATIN [Suspect]
     Active Substance: CARBOPLATIN
     Dosage: UNK
     Route: 042
     Dates: start: 20220113, end: 20220113
  3. ALIMTA [Suspect]
     Active Substance: PEMETREXED DISODIUM
     Indication: Lung adenocarcinoma
     Dosage: UNK
     Route: 042
     Dates: start: 20211215, end: 20211215
  4. ALIMTA [Suspect]
     Active Substance: PEMETREXED DISODIUM
     Dosage: UNK
     Route: 042
     Dates: start: 20220113, end: 20220113
  5. PEMBROLIZUMAB [Suspect]
     Active Substance: PEMBROLIZUMAB
     Indication: Lung adenocarcinoma
     Dosage: UNK
     Route: 042
     Dates: start: 20211215, end: 20211215
  6. PEMBROLIZUMAB [Suspect]
     Active Substance: PEMBROLIZUMAB
     Route: 042
     Dates: start: 20220113, end: 20220113
  7. TIXAGEVIMAB [Suspect]
     Active Substance: TIXAGEVIMAB
     Indication: COVID-19
     Dosage: 300 MG
     Route: 042
     Dates: start: 20220126, end: 20220126
  8. CILGAVIMAB [Suspect]
     Active Substance: CILGAVIMAB
     Indication: COVID-19
     Dosage: 300 MG
     Route: 017
     Dates: start: 20220126, end: 20220126
  9. MIDAZOLAM HYDROCHLORIDE [Suspect]
     Active Substance: MIDAZOLAM HYDROCHLORIDE
     Indication: Palliative care
     Dosage: 0.5 MG/H THEN INCREASED TO  1 MG/H
     Route: 017
     Dates: start: 20220131, end: 20220214
  10. MORPHINE [Suspect]
     Active Substance: MORPHINE
     Indication: Product used for unknown indication
     Dosage: 0.5 MG/H THEN INCREASED TO 1 MG/H
     Route: 017
     Dates: start: 20220131, end: 20220131
  11. PIPERACILLIN [Suspect]
     Active Substance: PIPERACILLIN
     Indication: Pseudomonas infection
     Route: 042
     Dates: start: 20220107, end: 20220117
  12. AUGMENTIN [Suspect]
     Active Substance: AMOXICILLIN\CLAVULANATE POTASSIUM
     Indication: Infection prophylaxis
     Dosage: 1 G X3 /DAY
     Route: 048
     Dates: start: 20220122, end: 20220124

REACTIONS (2)
  - Toxic epidermal necrolysis [Fatal]
  - Off label use [Unknown]

NARRATIVE: CASE EVENT DATE: 20211215
